FAERS Safety Report 7419689-8 (Version None)
Quarter: 2011Q2

REPORT INFORMATION
  Report Type: 
  Country: None (occurrence: None)
  Receive Date: 20110418
  Receipt Date: 20110407
  Transmission Date: 20111010
  Serious: Yes (Other)
  Sender: FDA-Public Use
  Company Number: US-JNJFOC-20110304440

PATIENT
  Sex: Male
  Weight: 112.49 kg

DRUGS (3)
  1. LIPITOR [Concomitant]
     Indication: HYPERCHOLESTEROLAEMIA
     Route: 048
  2. FENTANYL-100 [Suspect]
     Indication: PAIN IN EXTREMITY
     Dosage: NDC-0781-7112-55
     Route: 062
  3. TRAMADOL [Concomitant]
     Indication: PAIN
     Route: 048

REACTIONS (8)
  - EUPHORIC MOOD [None]
  - ACTIVITIES OF DAILY LIVING IMPAIRED [None]
  - PRODUCT ADHESION ISSUE [None]
  - GAIT DISTURBANCE [None]
  - INTENTIONAL DRUG MISUSE [None]
  - HEADACHE [None]
  - EXPIRED DRUG ADMINISTERED [None]
  - NAUSEA [None]
